FAERS Safety Report 11870395 (Version 1)
Quarter: 2015Q4

REPORT INFORMATION
  Report Type: Spontaneous
  Country: None (occurrence: None)
  Receive Date: 20151223
  Receipt Date: 20151223
  Transmission Date: 20160305
  Serious: No
  Sender: FDA-Public Use
  Company Number: None

PATIENT
  Age: 59 Year
  Sex: Male
  Weight: 181.89 kg

DRUGS (7)
  1. WARFARIN [Concomitant]
     Active Substance: WARFARIN
  2. LOSARTAN. [Concomitant]
     Active Substance: LOSARTAN
  3. REG INSULIN [Concomitant]
  4. LIPITOR [Concomitant]
     Active Substance: ATORVASTATIN CALCIUM
  5. DILTIAZEM [Concomitant]
     Active Substance: DILTIAZEM
  6. NPH INSULIN [Concomitant]
     Active Substance: INSULIN BEEF
  7. JARDIANCE [Suspect]
     Active Substance: EMPAGLIFLOZIN
     Indication: DIABETES MELLITUS
     Dosage: ONE PILL
     Route: 048

REACTIONS (4)
  - Hypoaesthesia [None]
  - Inflammation [None]
  - Penis disorder [None]
  - Condition aggravated [None]

NARRATIVE: CASE EVENT DATE: 20151221
